FAERS Safety Report 5244998-0 (Version None)
Quarter: 2007Q1

REPORT INFORMATION
  Report Type: 
  Country: None (occurrence: None)
  Receive Date: 20070223
  Receipt Date: 20070212
  Transmission Date: 20070707
  Serious: Yes (Other)
  Sender: FDA-Public Use
  Company Number: PHRM2007FR00797

PATIENT
  Age: 45 Year
  Sex: Female

DRUGS (3)
  1. KEPPRA [Concomitant]
     Dosage: 400 MG PER DAY
     Dates: start: 20010101
  2. THYROID HORMONES [Concomitant]
     Indication: AUTOIMMUNE THYROIDITIS
  3. TEGRETOL [Suspect]
     Indication: PARTIAL SEIZURES
     Dosage: 600 MG PER DAY
     Route: 048

REACTIONS (3)
  - CONSTIPATION [None]
  - SUBILEUS [None]
  - VOMITING [None]
